FAERS Safety Report 15107573 (Version 1)
Quarter: 2018Q3

REPORT INFORMATION
  Report Type: Report from Study
  Country: US (occurrence: US)
  Receive Date: 20180704
  Receipt Date: 20180704
  Transmission Date: 20181010
  Serious: Yes (Other)
  Sender: FDA-Public Use
  Company Number: US-TEVA-2018-US-917400

PATIENT
  Sex: Female

DRUGS (1)
  1. COPAXONE [Suspect]
     Active Substance: GLATIRAMER ACETATE
     Indication: MULTIPLE SCLEROSIS
     Route: 058
     Dates: start: 20180413

REACTIONS (7)
  - Loss of consciousness [Unknown]
  - Blindness [Unknown]
  - Deafness [Unknown]
  - Gait inability [Unknown]
  - Erythema [Unknown]
  - Dyspnoea [Unknown]
  - Blood pressure decreased [Unknown]
